FAERS Safety Report 12083895 (Version 2)
Quarter: 2016Q3

REPORT INFORMATION
  Report Type: Spontaneous
  Country: BR (occurrence: BR)
  Receive Date: 20160217
  Receipt Date: 20160708
  Transmission Date: 20161109
  Serious: Yes (Other)
  Sender: FDA-Public Use
  Company Number: BR-JNJFOC-20160213712

PATIENT
  Sex: Male
  Weight: 50 kg

DRUGS (2)
  1. METHOTREXATE. [Concomitant]
     Active Substance: METHOTREXATE
     Route: 065
  2. SIMPONI [Suspect]
     Active Substance: GOLIMUMAB
     Indication: RHEUMATOID ARTHRITIS
     Route: 058
     Dates: start: 20151023, end: 20151218

REACTIONS (13)
  - Lymphoma [Unknown]
  - Pneumonia [Unknown]
  - Renal cyst [Unknown]
  - Gait disturbance [Unknown]
  - Benign prostatic hyperplasia [Unknown]
  - Neoplasm [Unknown]
  - Pulmonary oedema [Unknown]
  - Chest pain [Unknown]
  - Nasopharyngitis [Unknown]
  - Hand deformity [Unknown]
  - Pulmonary fibrosis [Unknown]
  - Immune system disorder [Unknown]
  - Pain [Unknown]
